FAERS Safety Report 20682127 (Version 1)
Quarter: 2022Q2

REPORT INFORMATION
  Report Type: Spontaneous
  Country: US (occurrence: US)
  Receive Date: 20220407
  Receipt Date: 20220407
  Transmission Date: 20220720
  Serious: No
  Sender: FDA-Public Use
  Company Number: US-ELI_LILLY_AND_COMPANY-US202203004516

PATIENT
  Age: 55 Year
  Sex: Female

DRUGS (15)
  1. BASAGLAR [Suspect]
     Active Substance: INSULIN GLARGINE
     Indication: Product used for unknown indication
     Dosage: 75 U, UNKNOWN
     Route: 058
     Dates: start: 2012
  2. BASAGLAR [Suspect]
     Active Substance: INSULIN GLARGINE
     Indication: Product used for unknown indication
     Dosage: 75 U, UNKNOWN
     Route: 058
     Dates: start: 2012
  3. BASAGLAR [Suspect]
     Active Substance: INSULIN GLARGINE
     Dosage: 75 U, UNKNOWN
     Route: 058
     Dates: start: 2012
  4. BASAGLAR [Suspect]
     Active Substance: INSULIN GLARGINE
     Dosage: 75 U, UNKNOWN
     Route: 058
     Dates: start: 2012
  5. BASAGLAR [Suspect]
     Active Substance: INSULIN GLARGINE
     Dosage: 75 U, UNKNOWN
     Route: 058
     Dates: start: 2012
  6. BASAGLAR [Suspect]
     Active Substance: INSULIN GLARGINE
     Dosage: 75 U, UNKNOWN
     Route: 058
     Dates: start: 2012
  7. BASAGLAR [Suspect]
     Active Substance: INSULIN GLARGINE
     Dosage: 75 U, UNKNOWN
     Route: 058
     Dates: start: 2012
  8. BASAGLAR [Suspect]
     Active Substance: INSULIN GLARGINE
     Dosage: 75 U, UNKNOWN
     Route: 058
     Dates: start: 2012
  9. BASAGLAR [Suspect]
     Active Substance: INSULIN GLARGINE
     Dosage: 75 U, UNKNOWN
     Route: 058
     Dates: start: 2012
  10. BASAGLAR [Suspect]
     Active Substance: INSULIN GLARGINE
     Dosage: 75 U, UNKNOWN
     Route: 058
     Dates: start: 2012
  11. BASAGLAR [Suspect]
     Active Substance: INSULIN GLARGINE
     Dosage: 75 U, UNKNOWN
     Route: 058
     Dates: start: 2012
  12. BASAGLAR [Suspect]
     Active Substance: INSULIN GLARGINE
     Dosage: 75 U, UNKNOWN
     Route: 058
     Dates: start: 2012
  13. BASAGLAR [Suspect]
     Active Substance: INSULIN GLARGINE
     Dosage: 75 U, UNKNOWN
     Route: 058
     Dates: start: 2012
  14. BASAGLAR [Suspect]
     Active Substance: INSULIN GLARGINE
     Dosage: 75 U, UNKNOWN
     Route: 058
     Dates: start: 2012
  15. BASAGLAR [Suspect]
     Active Substance: INSULIN GLARGINE
     Dosage: 75 U, UNKNOWN
     Route: 058
     Dates: start: 2012

REACTIONS (2)
  - Blood glucose increased [Recovering/Resolving]
  - Incorrect dose administered [Unknown]

NARRATIVE: CASE EVENT DATE: 20220309
